FAERS Safety Report 4640522-1 (Version None)
Quarter: 2005Q2

REPORT INFORMATION
  Report Type: 
  Country: None (occurrence: None)
  Receive Date: 20050420
  Receipt Date: 20050324
  Transmission Date: 20051028
  Serious: Yes (Hospitalization)
  Sender: FDA-Public Use
  Company Number: PHBS2005JP04296

PATIENT
  Age: 52 Year
  Sex: Male
  Weight: 77 kg

DRUGS (3)
  1. LAMISIL [Suspect]
     Indication: NAIL TINEA
     Dosage: 125 MG, QD
     Route: 048
     Dates: start: 20050209, end: 20050314
  2. LOXOPROFEN SODIUM [Suspect]
     Indication: ARTHRALGIA
     Dosage: 3 TABLETS/D
     Route: 048
     Dates: start: 20050209, end: 20050314
  3. SELBEX [Concomitant]
     Indication: GASTRITIS
     Dosage: 3 DF/D
     Route: 048
     Dates: start: 20050317, end: 20050318

REACTIONS (16)
  - ALANINE AMINOTRANSFERASE INCREASED [None]
  - ARTHRALGIA [None]
  - ASPARTATE AMINOTRANSFERASE INCREASED [None]
  - BLOOD BILIRUBIN INCREASED [None]
  - CONJUNCTIVAL HYPERAEMIA [None]
  - HEPATIC FUNCTION ABNORMAL [None]
  - INFLUENZA [None]
  - JAUNDICE [None]
  - LIVER DISORDER [None]
  - PHARYNGEAL ERYTHEMA [None]
  - PHARYNGITIS [None]
  - PHARYNGOLARYNGEAL PAIN [None]
  - PYREXIA [None]
  - RASH [None]
  - TOXIC SKIN ERUPTION [None]
  - WHITE BLOOD CELL COUNT INCREASED [None]
